FAERS Safety Report 10866257 (Version 2)
Quarter: 2015Q1

REPORT INFORMATION
  Report Type: Report from Study
  Country: US (occurrence: US)
  Receive Date: 20150225
  Receipt Date: 20150320
  Transmission Date: 20150721
  Serious: Yes (Other)
  Sender: FDA-Public Use
  Company Number: US-BEH-2015048988

PATIENT
  Age: 52 Year
  Sex: Male
  Weight: 69 kg

DRUGS (1)
  1. BERINERT [Suspect]
     Active Substance: HUMAN C1-ESTERASE INHIBITOR
     Indication: COMPLICATIONS OF TRANSPLANTED KIDNEY
     Route: 042
     Dates: start: 20150111, end: 20150111

REACTIONS (3)
  - No adverse event [Unknown]
  - Poor quality drug administered [Unknown]
  - Product contamination physical [None]

NARRATIVE: CASE EVENT DATE: 20150112
